FAERS Safety Report 20208330 (Version 1)
Quarter: 2021Q4

REPORT INFORMATION
  Report Type: Spontaneous
  Country: DE (occurrence: DE)
  Receive Date: 20211220
  Receipt Date: 20211220
  Transmission Date: 20220303
  Serious: Yes (Hospitalization)
  Sender: FDA-Public Use
  Company Number: DE-NOVARTISPH-NVSC2021DE286432

PATIENT
  Age: 64 Year
  Sex: Male
  Weight: 91 kg

DRUGS (7)
  1. ENTRESTO [Suspect]
     Active Substance: SACUBITRIL\VALSARTAN
     Indication: Product used for unknown indication
     Dosage: UNK UNK, BID (24|26 MG, 1-0-1-0)
     Route: 048
  2. HUMAN RABIES VIRUS IMMUNE GLOBULIN [Suspect]
     Active Substance: HUMAN RABIES VIRUS IMMUNE GLOBULIN
     Indication: Product used for unknown indication
     Dosage: 30 G (ALLE 4 WOCHEN ZULETZT AM 19022021))
     Route: 042
  3. FLUTICASONE PROPIONATE\SALMETEROL XINAFOATE [Concomitant]
     Active Substance: FLUTICASONE PROPIONATE\SALMETEROL XINAFOATE
     Indication: Product used for unknown indication
     Dosage: UNK UNK, BID (250|50 ?G, 1-0-0-1, DOSIERAEROSOL)
     Route: 055
  4. ATORVASTATIN [Concomitant]
     Active Substance: ATORVASTATIN
     Indication: Product used for unknown indication
     Dosage: 10 MG, QD (0-0-1-0)
     Route: 048
  5. BISOPROLOL [Concomitant]
     Active Substance: BISOPROLOL
     Indication: Product used for unknown indication
     Dosage: 2.5 MG, QD (1-0-0-0)
     Route: 048
  6. APIXABAN [Concomitant]
     Active Substance: APIXABAN
     Indication: Product used for unknown indication
     Dosage: 5 MG, BID (1-0-1-0)
     Route: 048
  7. TIOTROPIUM BROMIDE ANHYDROUS [Concomitant]
     Active Substance: TIOTROPIUM BROMIDE ANHYDROUS
     Indication: Product used for unknown indication
     Dosage: 18 UG, QD (0-0-1-0, DOSIERAEROSOL)
     Route: 055

REACTIONS (5)
  - Pyrexia [Unknown]
  - Eructation [Unknown]
  - Chills [Unknown]
  - Abdominal pain upper [Unknown]
  - Nausea [Unknown]
